FAERS Safety Report 4438701-1 (Version None)
Quarter: 2004Q3

REPORT INFORMATION
  Report Type: 
  Country: None (occurrence: None)
  Receive Date: 20040901
  Receipt Date: 20040820
  Transmission Date: 20050211
  Serious: Yes (Death, Other)
  Sender: FDA-Public Use
  Company Number: US-JNJFOC-20040807307

PATIENT
  Sex: Male

DRUGS (1)
  1. REOPRO [Suspect]
     Indication: STENT PLACEMENT
     Route: 042

REACTIONS (1)
  - CARDIOGENIC SHOCK [None]
